FAERS Safety Report 21359669 (Version 1)
Quarter: 2022Q3

REPORT INFORMATION
  Report Type: Spontaneous
  Country: US (occurrence: US)
  Receive Date: 20220921
  Receipt Date: 20220921
  Transmission Date: 20221027
  Serious: No
  Sender: FDA-Public Use
  Company Number: US-BEH-2022149611

PATIENT
  Sex: Female

DRUGS (1)
  1. HIZENTRA [Suspect]
     Active Substance: HUMAN IMMUNOGLOBULIN G
     Indication: Immunodeficiency
     Dosage: 36 GRAM, QW
     Route: 058
     Dates: start: 20220823

REACTIONS (3)
  - Pain [Unknown]
  - Nausea [Unknown]
  - Wrong technique in product usage process [Unknown]
